FAERS Safety Report 23332229 (Version 1)
Quarter: 2023Q4

REPORT INFORMATION
  Report Type: Spontaneous
  Country: CA (occurrence: CA)
  Receive Date: 20231222
  Receipt Date: 20231222
  Transmission Date: 20240109
  Serious: Yes (Hospitalization)
  Sender: FDA-Public Use
  Company Number: CA-PFIZER INC-202300200920

PATIENT
  Age: 45 Year
  Sex: Female

DRUGS (3)
  1. RUXIENCE [Suspect]
     Active Substance: RITUXIMAB-PVVR
     Dosage: 1000 MG, DAY 1 AND DAY 15
     Route: 042
     Dates: start: 20230425
  2. RUXIENCE [Suspect]
     Active Substance: RITUXIMAB-PVVR
     Dosage: 1000 MG, AFTER 4 WEEKS, [DAY 1 AND DAY 15]
     Route: 042
     Dates: start: 20230523
  3. RUXIENCE [Suspect]
     Active Substance: RITUXIMAB-PVVR
     Dosage: UNK, (FIRST DOSE IN HOSPITAL)
     Route: 042
     Dates: start: 20231213

REACTIONS (4)
  - Myositis [Unknown]
  - Inappropriate schedule of product administration [Unknown]
  - Loss of personal independence in daily activities [Not Recovered/Not Resolved]
  - Vascular access site warmth [Not Recovered/Not Resolved]

NARRATIVE: CASE EVENT DATE: 20230101
